FAERS Safety Report 25142243 (Version 1)
Quarter: 2025Q1

REPORT INFORMATION
  Report Type: Spontaneous
  Country: US (occurrence: US)
  Receive Date: 20250331
  Receipt Date: 20250331
  Transmission Date: 20250409
  Serious: No
  Sender: PFIZER
  Company Number: US-PFIZER INC-202500067249

PATIENT
  Age: 27 Year
  Sex: Female

DRUGS (1)
  1. TOFACITINIB [Suspect]
     Active Substance: TOFACITINIB

REACTIONS (3)
  - Alopecia areata [Unknown]
  - Skin lesion [Unknown]
  - Rash [Unknown]
